FAERS Safety Report 10335742 (Version 1)
Quarter: 2014Q3

REPORT INFORMATION
  Report Type: Spontaneous
  Country: US (occurrence: US)
  Receive Date: 20140723
  Receipt Date: 20140723
  Transmission Date: 20150326
  Serious: Yes (Hospitalization)
  Sender: FDA-Public Use
  Company Number: US-BRISTOL-MYERS SQUIBB COMPANY-19099688

PATIENT
  Sex: Female

DRUGS (2)
  1. COUMADIN [Suspect]
     Active Substance: WARFARIN SODIUM
     Dosage: FIRST DOSE WAS STOPPED AND THEN RESTARTED AND THEN DOSE WAS INCREASED TO 5 TO 6 MG
     Dates: start: 20130624
  2. LOVENOX [Concomitant]
     Active Substance: ENOXAPARIN SODIUM

REACTIONS (3)
  - Anticoagulation drug level below therapeutic [Unknown]
  - Pulmonary embolism [Unknown]
  - International normalised ratio increased [Unknown]
